FAERS Safety Report 5239383-1 (Version None)
Quarter: 2007Q1

REPORT INFORMATION
  Report Type: 
  Country: None (occurrence: None)
  Receive Date: 20070216
  Receipt Date: 20070202
  Transmission Date: 20070707
  Serious: Yes (Other)
  Sender: FDA-Public Use
  Company Number: PHBS2007BR02393

PATIENT
  Age: 73 Year
  Sex: Male

DRUGS (1)
  1. SLOW-K [Suspect]
     Dosage: 600 MG/DAY
     Route: 048

REACTIONS (4)
  - ANGINA PECTORIS [None]
  - BLOOD PRESSURE INCREASED [None]
  - MUSCLE SPASMS [None]
  - MYALGIA [None]
